FAERS Safety Report 18572310 (Version 1)
Quarter: 2020Q4

REPORT INFORMATION
  Report Type: Spontaneous
  Country: US (occurrence: US)
  Receive Date: 20201202
  Receipt Date: 20201202
  Transmission Date: 20210114
  Serious: No
  Sender: FDA-Public Use
  Company Number: US-FRESENIUS MEDICAL CARE RENAL THERAPIES GROUP-FMC-2012-001456

PATIENT
  Sex: Female

DRUGS (1)
  1. DELFLEX [Suspect]
     Active Substance: CALCIUM CHLORIDE\DEXTROSE\MAGNESIUM CHLORIDE\SODIUM CHLORIDE\SODIUM LACTATE
     Indication: END STAGE RENAL DISEASE
     Dosage: FILLS 3; FILL VOLUME 2,000 ML; LAST FILL VOLUME 0ML; TOTAL VOLUME 6,000 ML; TOTAL SLEEP TIME 8 HR 30
     Route: 033

REACTIONS (2)
  - Peripheral swelling [Unknown]
  - Joint swelling [Unknown]
